FAERS Safety Report 19385124 (Version 7)
Quarter: 2023Q4

REPORT INFORMATION
  Report Type: Report from Study
  Country: JP (occurrence: JP)
  Receive Date: 20210608
  Receipt Date: 20231106
  Transmission Date: 20240109
  Serious: Yes (Hospitalization, Other)
  Sender: FDA-Public Use
  Company Number: JP-ABBVIE-21K-087-3911614-00

PATIENT
  Age: 73 Year
  Sex: Male
  Weight: 50 kg

DRUGS (12)
  1. VENCLEXTA [Suspect]
     Active Substance: VENETOCLAX
     Indication: Acute myeloid leukaemia
     Dosage: 50 MILLIGRAM
     Route: 048
     Dates: start: 20210421, end: 20210531
  2. VENCLEXTA [Suspect]
     Active Substance: VENETOCLAX
     Indication: Acute myeloid leukaemia
     Dosage: 20 MILLIGRAM
     Route: 048
     Dates: start: 20210420, end: 20210420
  3. VENCLEXTA [Suspect]
     Active Substance: VENETOCLAX
     Indication: Acute myeloid leukaemia
     Dosage: 10 MILLIGRAM
     Route: 048
     Dates: start: 20210419, end: 20210419
  4. VENCLEXTA [Suspect]
     Active Substance: VENETOCLAX
     Indication: Acute myeloid leukaemia
     Dosage: 20 MILLIGRAM
     Dates: start: 20210708
  5. VENCLEXTA [Suspect]
     Active Substance: VENETOCLAX
     Indication: Acute myeloid leukaemia
     Route: 048
  6. VENCLEXTA [Suspect]
     Active Substance: VENETOCLAX
     Indication: Acute myeloid leukaemia
     Dosage: 10 MILLIGRAM
     Dates: start: 20210707
  7. VENCLEXTA [Suspect]
     Active Substance: VENETOCLAX
     Indication: Acute myeloid leukaemia
     Dosage: 50 MILLIGRAM
     Dates: start: 20210709, end: 20210803
  8. ITRACONAZOLE [Concomitant]
     Active Substance: ITRACONAZOLE
     Indication: Infection prophylaxis
     Dosage: STRENGTH: 1 PERCENT
     Route: 048
     Dates: start: 20210419, end: 20220215
  9. AZACITIDINE [Suspect]
     Active Substance: AZACITIDINE
     Indication: Acute myeloid leukaemia
     Route: 065
     Dates: start: 20210706, end: 20210714
  10. AZACITIDINE [Suspect]
     Active Substance: AZACITIDINE
     Indication: Acute myeloid leukaemia
     Route: 058
     Dates: start: 20210419, end: 20210427
  11. MEROPENEM [Concomitant]
     Active Substance: MEROPENEM
     Indication: Product used for unknown indication
  12. FEBUXOSTAT [Concomitant]
     Active Substance: FEBUXOSTAT
     Indication: Prophylaxis
     Dosage: FORM STRENGTH UNITS: 20 MILLIGRAM
     Route: 048
     Dates: start: 20210419, end: 20220215

REACTIONS (6)
  - Haemophagocytic lymphohistiocytosis [Recovered/Resolved]
  - Leukopenia [Recovered/Resolved]
  - Neutropenia [Recovered/Resolved]
  - Blood bilirubin increased [Recovered/Resolved]
  - Neutropenia [Recovered/Resolved]
  - White blood cell count decreased [Recovered/Resolved]

NARRATIVE: CASE EVENT DATE: 20210426
